FAERS Safety Report 9454889 (Version 2)
Quarter: 2013Q4

REPORT INFORMATION
  Report Type: Spontaneous
  Country: US (occurrence: US)
  Receive Date: 20130813
  Receipt Date: 20131031
  Transmission Date: 20140711
  Serious: Yes (Other)
  Sender: FDA-Public Use
  Company Number: US-ASTRAZENECA-2013SE60883

PATIENT
  Age: 51 Year
  Sex: Female
  Weight: 95.3 kg

DRUGS (8)
  1. SYMBICORT [Suspect]
     Indication: CHRONIC OBSTRUCTIVE PULMONARY DISEASE
     Dosage: 80/4.5 MCG, 2 PUFFS, DAILY
     Route: 055
     Dates: start: 2012
  2. SYMBICORT [Suspect]
     Indication: CHRONIC OBSTRUCTIVE PULMONARY DISEASE
     Dosage: 80/4.5 MCG, 2 PUFFS, TWO TIMES A DAY
     Route: 055
     Dates: start: 2012, end: 2013
  3. SYMBICORT [Suspect]
     Indication: CHRONIC OBSTRUCTIVE PULMONARY DISEASE
     Dosage: 80/4.5 MCG, 2 PUFFS, DAILY
     Route: 055
     Dates: start: 2013
  4. LISINOPRIL [Suspect]
     Route: 048
  5. SYNTHROID [Concomitant]
     Route: 048
  6. METFORMIN ER [Concomitant]
     Route: 048
  7. NIFEDIPINE EA XL [Concomitant]
  8. LESCOL XL [Concomitant]

REACTIONS (5)
  - Loss of consciousness [Unknown]
  - Muscle twitching [Unknown]
  - Hypoaesthesia [Unknown]
  - Presyncope [Unknown]
  - Intentional drug misuse [Unknown]
